FAERS Safety Report 4494844-8 (Version None)
Quarter: 2004Q4

REPORT INFORMATION
  Report Type: 
  Country: None (occurrence: None)
  Receive Date: 20041103
  Receipt Date: 20041008
  Transmission Date: 20050328
  Serious: Yes (Death)
  Sender: FDA-Public Use
  Company Number: 006#1#2004-00031

PATIENT
  Age: 63 Year
  Sex: Male

DRUGS (1)
  1. EDEX [Suspect]
     Indication: ERECTILE DYSFUNCTION
     Route: 017
     Dates: start: 20040801

REACTIONS (5)
  - ABDOMINAL PAIN [None]
  - INTERNATIONAL NORMALISED RATIO INCREASED [None]
  - PROTHROMBIN LEVEL DECREASED [None]
  - SEPTIC SHOCK [None]
  - SUDDEN DEATH [None]
